FAERS Safety Report 12089716 (Version 5)
Quarter: 2016Q3

REPORT INFORMATION
  Report Type: Spontaneous
  Country: US (occurrence: US)
  Receive Date: 20160218
  Receipt Date: 20160916
  Transmission Date: 20161109
  Serious: No
  Sender: FDA-Public Use
  Company Number: US-PFIZER INC-2016085611

PATIENT
  Age: 79 Year
  Sex: Female
  Weight: 57.15 kg

DRUGS (12)
  1. LETROZOLE. [Concomitant]
     Active Substance: LETROZOLE
     Dosage: 2.5 MG, 1X/DAY
     Route: 048
     Dates: start: 20150928
  2. CRESTOR [Concomitant]
     Active Substance: ROSUVASTATIN CALCIUM
     Dosage: 5 MG, 1X/DAY
     Route: 048
  3. ALENDRONATE [Concomitant]
     Active Substance: ALENDRONATE SODIUM
     Dosage: 70 MG, 1X/DAY
     Route: 048
  4. IBRANCE [Suspect]
     Active Substance: PALBOCICLIB
     Dosage: 125 MG, CYCLIC (DAILY ON DAYS 1-21 EVERY 28 DAYS)
     Route: 048
     Dates: start: 201510
  5. IBRANCE [Suspect]
     Active Substance: PALBOCICLIB
     Indication: BREAST CANCER
     Dosage: 125 MG, (1-21 Q28 DAYS)
     Dates: start: 20151124
  6. AMBIEN [Concomitant]
     Active Substance: ZOLPIDEM TARTRATE
     Dosage: 5 MG, AS NEEDED (AT BEDTIME)
     Dates: start: 20160128
  7. LETROZOLE. [Concomitant]
     Active Substance: LETROZOLE
     Indication: BREAST CANCER
     Dosage: 2.5 MG, DAILY
     Route: 048
     Dates: start: 201511
  8. AMBIEN [Concomitant]
     Active Substance: ZOLPIDEM TARTRATE
     Dosage: 5 MG, 1X/DAY (IN THE EVENING)
     Route: 048
  9. ASPIRIN. [Concomitant]
     Active Substance: ASPIRIN
     Dosage: 81 MG, 1X/DAY
     Route: 048
  10. METOPROLOL TARTRATE. [Concomitant]
     Active Substance: METOPROLOL TARTRATE
     Dosage: 25 MG, 1X/DAY
     Route: 048
  11. CENTRUM [Concomitant]
     Active Substance: VITAMINS
     Dosage: UNK, DAILY (0.4-162-18 MG )
     Route: 048
  12. PRILOSEC [Concomitant]
     Active Substance: OMEPRAZOLE MAGNESIUM
     Dosage: 20 MG, 1X/DAY
     Route: 048

REACTIONS (10)
  - Insomnia [Unknown]
  - Amnesia [Recovered/Resolved]
  - Abdominal discomfort [Unknown]
  - Tooth loss [Unknown]
  - Dizziness [Unknown]
  - Vitamin D deficiency [Unknown]
  - Dyspnoea [Unknown]
  - Constipation [Unknown]
  - Cerumen impaction [Unknown]
  - Fatigue [Recovered/Resolved]

NARRATIVE: CASE EVENT DATE: 20160715
